FAERS Safety Report 5689539-9 (Version None)
Quarter: 2008Q1

REPORT INFORMATION
  Report Type: 
  Country: None (occurrence: None)
  Receive Date: 20080331
  Receipt Date: 20080325
  Transmission Date: 20080703
  Serious: Yes (Other)
  Sender: FDA-Public Use
  Company Number: DE-PFIZER INC-2008027305

PATIENT
  Sex: Female
  Weight: 55 kg

DRUGS (1)
  1. CHAMPIX [Suspect]
     Dosage: DAILY DOSE:1MG
     Route: 048
     Dates: start: 20080211, end: 20080211

REACTIONS (4)
  - DELUSION [None]
  - DIZZINESS [None]
  - HEADACHE [None]
  - POISONING [None]
